FAERS Safety Report 15667752 (Version 5)
Quarter: 2020Q1

REPORT INFORMATION
  Report Type: Spontaneous
  Country: US (occurrence: US)
  Receive Date: 20181128
  Receipt Date: 20200108
  Transmission Date: 20200409
  Serious: No
  Sender: FDA-Public Use
  Company Number: US-PFIZER INC-2018482110

PATIENT
  Age: 46 Year
  Sex: Female
  Weight: 76 kg

DRUGS (13)
  1. DOCETAXEL. [Suspect]
     Active Substance: DOCETAXEL
     Dosage: 80 MG/M2, CYCLIC (EVERY 3 WEEKS, 06 CYCLES)
     Dates: start: 20140527, end: 20140527
  2. TAMOXIFEN [Concomitant]
     Active Substance: TAMOXIFEN
     Indication: HORMONE THERAPY
     Dosage: UNK
     Dates: start: 20141202, end: 20160105
  3. DOCETAXEL. [Suspect]
     Active Substance: DOCETAXEL
     Dosage: 80 MG/M2, CYCLIC (EVERY 3 WEEKS, 06 CYCLES)
     Dates: start: 20140415, end: 20140415
  4. TAXOTERE [Concomitant]
     Active Substance: DOCETAXEL
     Indication: CHEMOTHERAPY
     Dosage: UNK
  5. ADRIAMYCIN [Concomitant]
     Active Substance: DOXORUBICIN HYDROCHLORIDE
     Indication: CHEMOTHERAPY
     Dosage: UNK
  6. DOCETAXEL. [Suspect]
     Active Substance: DOCETAXEL
     Dosage: 80 MG/M2, CYCLIC (EVERY 3 WEEKS, 06 CYCLES)
     Dates: start: 20140506, end: 20140506
  7. NEOSAR [Concomitant]
     Active Substance: CYCLOPHOSPHAMIDE
     Indication: CHEMOTHERAPY
     Dosage: UNK
  8. DOXIL [Concomitant]
     Active Substance: DOXORUBICIN HYDROCHLORIDE
     Indication: CHEMOTHERAPY
     Dosage: UNK
  9. DOCETAXEL. [Suspect]
     Active Substance: DOCETAXEL
     Indication: BREAST CANCER FEMALE
     Dosage: 100 MG/M2, CYCLIC (EVERY 3 WEEKS, 06 CYCLES)
     Dates: start: 20140225, end: 20140225
  10. DOCETAXEL. [Suspect]
     Active Substance: DOCETAXEL
     Dosage: 80 MG/M2, CYCLIC (EVERY 3 WEEKS, 06 CYCLES)
     Dates: start: 20140617, end: 20140617
  11. DOCETAXEL. [Suspect]
     Active Substance: DOCETAXEL
     Dosage: 80 MG/M2, CYCLIC (EVERY 3 WEEKS, 06 CYCLES)
     Dates: start: 20140707, end: 20140707
  12. METFORMIN [Concomitant]
     Active Substance: METFORMIN HYDROCHLORIDE
     Dosage: UNK
     Dates: start: 2009
  13. CYTOXAN [Concomitant]
     Active Substance: CYCLOPHOSPHAMIDE
     Indication: CHEMOTHERAPY
     Dosage: UNK

REACTIONS (5)
  - Madarosis [Not Recovered/Not Resolved]
  - Hair texture abnormal [Not Recovered/Not Resolved]
  - Hair disorder [Not Recovered/Not Resolved]
  - Hair colour changes [Not Recovered/Not Resolved]
  - Alopecia [Not Recovered/Not Resolved]

NARRATIVE: CASE EVENT DATE: 201409
